FAERS Safety Report 19026926 (Version 1)
Quarter: 2021Q1

REPORT INFORMATION
  Report Type: Spontaneous
  Country: PL (occurrence: PL)
  Receive Date: 20210318
  Receipt Date: 20210318
  Transmission Date: 20210420
  Serious: Yes (Other)
  Sender: FDA-Public Use
  Company Number: PL-GLAXOSMITHKLINE-PLCH2021012656

PATIENT
  Age: 65 Year
  Sex: Female

DRUGS (8)
  1. CALCIUM FOLINATE [Suspect]
     Active Substance: LEUCOVORIN CALCIUM
     Indication: RECTOSIGMOID CANCER
     Dosage: 338 MG
     Route: 042
     Dates: start: 20170821, end: 20170821
  2. IRINOTECAN HYDROCHLORIDE. [Suspect]
     Active Substance: IRINOTECAN HYDROCHLORIDE
     Indication: RECTOSIGMOID CANCER
     Dosage: 304.2 MG
     Route: 042
     Dates: start: 20170821, end: 20170821
  3. ERBITUX [Suspect]
     Active Substance: CETUXIMAB
     Indication: RECTOSIGMOID CANCER
     Dosage: 676 MG (500 MG)
     Route: 042
     Dates: start: 20170821, end: 20170821
  4. ERBITUX [Suspect]
     Active Substance: CETUXIMAB
     Dosage: 676 MG (100 MG)
     Route: 042
     Dates: start: 20170821, end: 20170821
  5. LORISTA HD [Concomitant]
     Indication: HYPERTENSION
     Dosage: 1 DF
     Route: 048
  6. VOLTAREN [Suspect]
     Active Substance: DICLOFENAC SODIUM
     Indication: ARTHRALGIA
     Dosage: 200 MG (100?200 MG, PER DAY)
     Route: 048
     Dates: end: 20170901
  7. FLUOROURACIL. [Suspect]
     Active Substance: FLUOROURACIL
     Indication: RECTOSIGMOID CANCER
     Dosage: 1690 MG
     Route: 042
     Dates: start: 20170821, end: 20170822
  8. CORONAL (BISOPROLOL FUMARAT) [Concomitant]
     Indication: HYPERTENSION
     Dosage: 10 MG
     Route: 048

REACTIONS (6)
  - Hypomagnesaemia [Recovered/Resolved]
  - Nausea [Recovered/Resolved]
  - Neutropenia [Recovered/Resolved]
  - Renal failure [Recovered/Resolved]
  - Diarrhoea [Recovered/Resolved]
  - Vomiting [Recovered/Resolved]

NARRATIVE: CASE EVENT DATE: 20170828
